FAERS Safety Report 14602259 (Version 1)
Quarter: 2018Q1

REPORT INFORMATION
  Report Type: Report from Study
  Country: None (occurrence: US)
  Receive Date: 20180306
  Receipt Date: 20180306
  Transmission Date: 20180509
  Serious: Yes (Hospitalization, Disabling, Other)
  Sender: FDA-Public Use
  Company Number: US-ABBVIE-18K-163-2273448-00

PATIENT
  Sex: Female
  Weight: 90.8 kg

DRUGS (19)
  1. ATORVASTATIN [Concomitant]
     Active Substance: ATORVASTATIN
     Indication: BLOOD CHOLESTEROL
  2. CALCIUM [Concomitant]
     Active Substance: CALCIUM
     Indication: PRODUCT USED FOR UNKNOWN INDICATION
  3. ASPIRIN. [Concomitant]
     Active Substance: ASPIRIN
     Indication: PRODUCT USED FOR UNKNOWN INDICATION
  4. OMEPRAZOLE. [Concomitant]
     Active Substance: OMEPRAZOLE
     Indication: PRODUCT USED FOR UNKNOWN INDICATION
  5. CLARITIN [Concomitant]
     Active Substance: LORATADINE
     Indication: HYPERSENSITIVITY
  6. HUMIRA [Suspect]
     Active Substance: ADALIMUMAB
     Route: 058
     Dates: start: 201802
  7. SYMBICORT [Suspect]
     Active Substance: BUDESONIDE\FORMOTEROL FUMARATE DIHYDRATE
     Indication: CHRONIC OBSTRUCTIVE PULMONARY DISEASE
  8. LASIX [Concomitant]
     Active Substance: FUROSEMIDE
     Indication: PRODUCT USED FOR UNKNOWN INDICATION
  9. HUMIRA [Suspect]
     Active Substance: ADALIMUMAB
     Indication: PSORIATIC ARTHROPATHY
     Route: 058
     Dates: end: 2017
  10. SYMBICORT [Suspect]
     Active Substance: BUDESONIDE\FORMOTEROL FUMARATE DIHYDRATE
     Indication: ASTHMA
     Route: 065
     Dates: end: 201801
  11. HUMIRA [Suspect]
     Active Substance: ADALIMUMAB
     Route: 058
     Dates: start: 2017, end: 201711
  12. HUMIRA [Suspect]
     Active Substance: ADALIMUMAB
     Route: 058
     Dates: start: 201801, end: 201801
  13. FENTANYL. [Suspect]
     Active Substance: FENTANYL
     Indication: PAIN
     Route: 065
     Dates: start: 201712, end: 201712
  14. BREO ELLIPTA [Concomitant]
     Active Substance: FLUTICASONE FUROATE\VILANTEROL TRIFENATATE
     Indication: ASTHMA
     Dates: start: 201801
  15. CYMBALTA [Concomitant]
     Active Substance: DULOXETINE HYDROCHLORIDE
     Indication: PRODUCT USED FOR UNKNOWN INDICATION
  16. BENAZEPRIL [Concomitant]
     Active Substance: BENAZEPRIL HYDROCHLORIDE
     Indication: HYPERTENSION
  17. BREO ELLIPTA [Concomitant]
     Active Substance: FLUTICASONE FUROATE\VILANTEROL TRIFENATATE
     Indication: CHRONIC OBSTRUCTIVE PULMONARY DISEASE
  18. DILTIAZEM. [Concomitant]
     Active Substance: DILTIAZEM
     Indication: HYPERTENSION
     Dosage: EXTENDED RELEASE
  19. NORCO [Concomitant]
     Active Substance: ACETAMINOPHEN\HYDROCODONE BITARTRATE
     Indication: PAIN

REACTIONS (21)
  - Restless legs syndrome [Not Recovered/Not Resolved]
  - Postoperative wound infection [Recovered/Resolved]
  - Pain [Unknown]
  - Injection site pain [Unknown]
  - Intervertebral disc protrusion [Recovered/Resolved]
  - Gait inability [Not Recovered/Not Resolved]
  - Blood glucose increased [Recovered/Resolved]
  - Musculoskeletal pain [Not Recovered/Not Resolved]
  - Drug ineffective [Recovered/Resolved]
  - Osteonecrosis [Not Recovered/Not Resolved]
  - Pain in extremity [Not Recovered/Not Resolved]
  - Spinal osteoarthritis [Recovered/Resolved]
  - Oxygen saturation decreased [Unknown]
  - Spinal osteoarthritis [Unknown]
  - Joint swelling [Not Recovered/Not Resolved]
  - Feeling abnormal [Recovered/Resolved]
  - Arthralgia [Not Recovered/Not Resolved]
  - Pollakiuria [Not Recovered/Not Resolved]
  - Nerve compression [Not Recovered/Not Resolved]
  - Psoriasis [Not Recovered/Not Resolved]
  - Malaise [Recovered/Resolved]

NARRATIVE: CASE EVENT DATE: 2017
